FAERS Safety Report 4289543-1 (Version None)
Quarter: 2004Q1

REPORT INFORMATION
  Report Type: 
  Country: None (occurrence: None)
  Receive Date: 20040205
  Receipt Date: 20040127
  Transmission Date: 20041129
  Serious: Yes (Hospitalization)
  Sender: FDA-Public Use
  Company Number: 2004-01-1599

PATIENT
  Age: 4 Year
  Sex: Female
  Weight: 14 kg

DRUGS (3)
  1. BETAMETHASONE [Suspect]
     Indication: BRONCHIOLITIS
     Dates: start: 19940101, end: 19940101
  2. HEXAPNEUMINE [Suspect]
     Dates: start: 19970101, end: 19970101
  3. AUGMENTIN [Concomitant]

REACTIONS (2)
  - HYPOTHERMIA [None]
  - PALLOR [None]
